FAERS Safety Report 4548545-8 (Version None)
Quarter: 2004Q4

REPORT INFORMATION
  Report Type: 
  Country: None (occurrence: None)
  Receive Date: 20041227
  Receipt Date: 20040917
  Transmission Date: 20050328
  Serious: No
  Sender: FDA-Public Use
  Company Number: 04P-163-0273847-00

PATIENT
  Age: 49 Year
  Sex: Male
  Weight: 118 kg

DRUGS (10)
  1. HUMIRA [Suspect]
     Indication: RHEUMATOID ARTHRITIS
     Dosage: 40 MG, 1 IN 2 WK, SUBCUTANEOUS
     Route: 058
     Dates: start: 20040601
  2. TEMAZEPAM [Concomitant]
  3. FOSINOPRIL [Concomitant]
  4. SIMVASTATIN [Concomitant]
  5. PREDNISONE [Concomitant]
  6. METOPROLOL [Concomitant]
  7. ACETAMINOPHEN W/ CODEINE [Concomitant]
  8. NAPROXEN [Concomitant]
  9. RANITIDINE [Concomitant]
  10. FLUROSEMIDE [Concomitant]

REACTIONS (2)
  - DIABETES MELLITUS [None]
  - DRUG INEFFECTIVE [None]
